FAERS Safety Report 5779811-6 (Version None)
Quarter: 2008Q2

REPORT INFORMATION
  Report Type: 
  Country: None (occurrence: None)
  Receive Date: 20080618
  Receipt Date: 20080605
  Transmission Date: 20081010
  Serious: Yes (Hospitalization)
  Sender: FDA-Public Use
  Company Number: 2008014231

PATIENT
  Age: 68 Year
  Sex: Female

DRUGS (12)
  1. CETIRIZINE HCL [Suspect]
     Indication: PRURITUS
     Dosage: 10 MG, ORAL
     Route: 048
     Dates: end: 20080527
  2. FAMOTIDINE [Suspect]
     Dosage: 0.2 G, ORAL
     Route: 048
     Dates: end: 20080527
  3. DEXCHLORPHENIRAMINE MALEATE [Suspect]
     Dosage: 4 MG, ORAL
     Route: 048
     Dates: end: 20080527
  4. SULPIRIDE (SULPIRIDE) [Concomitant]
  5. KOLANTYL (ALUMINIUM HYDROXIDE, DICYCLOVERINE HYDROCHLORIDE, MAGNESIUM [Concomitant]
  6. ECABET MONOSODIUM (ECABET MONOSODIUM) [Concomitant]
  7. MANIDIPINE HYDROCHLORIDE (MANIDIPINE HYDROCHLORIDE) [Concomitant]
  8. ENALAPRIL MALEATE [Concomitant]
  9. SERRAPEPTASE (SERRAPEPTASE) [Concomitant]
  10. DEXTROMETHORPHAN HYDROBROMIDE (DEXTROMETHORPHAN HYDROBROMIDE) [Concomitant]
  11. AMLODIPINE [Concomitant]
  12. ACETYLSALICYLIC ACID SRT [Concomitant]

REACTIONS (7)
  - CHEST DISCOMFORT [None]
  - DYSPNOEA [None]
  - GENERALISED OEDEMA [None]
  - HEADACHE [None]
  - HYPONATRAEMIA [None]
  - THIRST [None]
  - WATER INTOXICATION [None]
